FAERS Safety Report 6040321 (Version 2)
Quarter: 2019Q1

REPORT INFORMATION
  Report Type: Spontaneous
  Country: FR (occurrence: FR)
  Receive Date: 20060508
  Receipt Date: 20190201
  Transmission Date: 20190418
  Serious: Yes (Hospitalization, Other)
  Sender: FDA-Public Use
  Company Number: FR-GILEAD-2006-0009517

PATIENT
  Age: 35 Year
  Sex: Male
  Weight: 63 kg

DRUGS (6)
  1. NORVIR [Concomitant]
     Active Substance: RITONAVIR
     Dosage: 100 MG, BID
     Route: 048
     Dates: start: 20030416
  2. VIREAD [Suspect]
     Active Substance: TENOFOVIR DISOPROXIL FUMARATE
     Indication: HIV INFECTION
     Dosage: 300 MG, QD
     Route: 048
     Dates: start: 20030416, end: 20050901
  3. VIDEX [Suspect]
     Active Substance: DIDANOSINE
     Indication: HIV INFECTION
     Route: 048
     Dates: start: 20030514, end: 20050629
  4. SUSTIVA [Concomitant]
     Active Substance: EFAVIRENZ
     Route: 048
     Dates: start: 20030616
  5. AGENERASE [Concomitant]
     Active Substance: AMPRENAVIR
     Dosage: 150 MG, 6/DAY
     Route: 048
     Dates: start: 20030416, end: 20041108
  6. TELZIR [Concomitant]
     Active Substance: FOSAMPRENAVIR CALCIUM
     Dosage: 700 MG, BID
     Route: 048
     Dates: start: 20041108

REACTIONS (9)
  - Pancreatitis acute [Recovered/Resolved]
  - Pancreatitis chronic [Recovered/Resolved]
  - Cholelithiasis [Recovered/Resolved]
  - Vomiting [Unknown]
  - Jaundice [Unknown]
  - Lipase increased [Unknown]
  - Amylase increased [Unknown]
  - Hyperbilirubinaemia [Unknown]
  - Abdominal pain upper [Unknown]

NARRATIVE: CASE EVENT DATE: 20040206
